FAERS Safety Report 6346067-5 (Version None)
Quarter: 2009Q3

REPORT INFORMATION
  Report Type: 
  Country: None (occurrence: None)
  Receive Date: 20090909
  Receipt Date: 20090828
  Transmission Date: 20100115
  Serious: Yes (Death, Life-Threatening, Hospitalization, Other)
  Sender: FDA-Public Use
  Company Number: SE-ELI_LILLY_AND_COMPANY-SE200908006196

PATIENT
  Age: 50 Year
  Sex: Female

DRUGS (5)
  1. FONTEX [Suspect]
     Dosage: 5 ML, UNK
     Route: 048
  2. KALCIPOS-D [Concomitant]
  3. VITAMIN D3 [Concomitant]
  4. VITAMIN E [Concomitant]
  5. ASCORBIC ACID [Concomitant]

REACTIONS (4)
  - ANOXIC ENCEPHALOPATHY [None]
  - CHEST PAIN [None]
  - SHOCK [None]
  - VENTRICULAR FIBRILLATION [None]
